FAERS Safety Report 4340682-6 (Version None)
Quarter: 2004Q2

REPORT INFORMATION
  Report Type: 
  Country: None (occurrence: None)
  Receive Date: 20040414
  Receipt Date: 20040331
  Transmission Date: 20050107
  Serious: Yes (Other)
  Sender: FDA-Public Use
  Company Number: S04-USA-01881-01

PATIENT
  Age: 59 Year
  Sex: Male

DRUGS (15)
  1. NAMENDA [Suspect]
     Indication: DEMENTIA ALZHEIMER'S TYPE
     Dosage: 25 MG QAM PO
     Route: 048
     Dates: start: 20040315, end: 20040330
  2. NAMENDA [Suspect]
     Indication: DEMENTIA ALZHEIMER'S TYPE
     Dosage: 20 MG QAM PO
     Route: 048
     Dates: start: 20040401
  3. NAMENDA [Suspect]
     Indication: DEMENTIA ALZHEIMER'S TYPE
     Dosage: 5 MG QAM PO
     Route: 048
     Dates: start: 20031211, end: 20031224
  4. NAMENDA [Suspect]
     Indication: DEMENTIA ALZHEIMER'S TYPE
     Dosage: 10 MG QAM PO
     Route: 048
     Dates: start: 20031225, end: 20040124
  5. NAMENDA [Suspect]
     Indication: DEMENTIA ALZHEIMER'S TYPE
     Dosage: 15 MG QAM PO
     Route: 048
     Dates: start: 20040125, end: 20040224
  6. NAMENDA [Suspect]
     Indication: DEMENTIA ALZHEIMER'S TYPE
     Dosage: 20 MG QAM PO
     Route: 048
     Dates: start: 20040225, end: 20040314
  7. ABILIFY [Concomitant]
  8. ALPHA LIPOIC ACID [Concomitant]
  9. HYTRIN (TERAZONSIN HYDROCHLORIDE) [Concomitant]
  10. LIPITOR [Concomitant]
  11. NATURAL VITAMIN E [Concomitant]
  12. NORVASC [Concomitant]
  13. REMERON [Concomitant]
  14. REMINYL [Concomitant]
  15. XANAX [Concomitant]

REACTIONS (3)
  - CONFUSIONAL STATE [None]
  - GRAND MAL CONVULSION [None]
  - LOSS OF CONSCIOUSNESS [None]
